FAERS Safety Report 15397166 (Version 1)
Quarter: 2018Q3

REPORT INFORMATION
  Report Type: Spontaneous
  Country: US (occurrence: US)
  Receive Date: 20180913
  Receipt Date: 20180913
  Transmission Date: 20181010
  Serious: No
  Sender: FDA-Public Use
  Company Number: None

PATIENT
  Age: 40 Year
  Sex: Female
  Weight: 122.47 kg

DRUGS (1)
  1. ENBREL [Suspect]
     Active Substance: ETANERCEPT
     Indication: PSORIATIC ARTHROPATHY
     Dosage: INJECT 50MG SUBCUTANEOUSLY TWO TIMES A WEEK 72 ?96 HOURS APART AS DIRECTED
     Route: 058
     Dates: start: 201801

REACTIONS (1)
  - Inappropriate schedule of drug administration [None]
